FAERS Safety Report 9800208 (Version 1)
Quarter: 2014Q1

REPORT INFORMATION
  Report Type: Spontaneous
  Country: FR (occurrence: FR)
  Receive Date: 20140106
  Receipt Date: 20140106
  Transmission Date: 20141002
  Serious: Yes (Hospitalization, Disabling)
  Sender: FDA-Public Use
  Company Number: FR-IPSEN BIOPHARMACEUTICALS, INC.-2013-5980

PATIENT
  Age: 68 Year
  Sex: Female

DRUGS (4)
  1. SOMATULINE L.P. 120MG [Suspect]
     Indication: NEUROENDOCRINE CARCINOMA METASTATIC
     Dosage: 120 MG
     Route: 030
     Dates: start: 201301, end: 201310
  2. AFINITOR [Suspect]
     Indication: NEUROENDOCRINE CARCINOMA METASTATIC
     Route: 048
     Dates: start: 201301, end: 201302
  3. AFINITOR [Suspect]
     Route: 048
     Dates: start: 201302, end: 20130719
  4. POLARAMINE [Concomitant]
     Indication: PRODUCT USED FOR UNKNOWN INDICATION
     Route: 048
     Dates: start: 201302, end: 201305

REACTIONS (2)
  - Toxic skin eruption [Not Recovered/Not Resolved]
  - Incorrect route of drug administration [Unknown]
